FAERS Safety Report 25526744 (Version 2)
Quarter: 2025Q3

REPORT INFORMATION
  Report Type: Spontaneous
  Country: US (occurrence: US)
  Receive Date: 20250707
  Receipt Date: 20250930
  Transmission Date: 20251021
  Serious: Yes (Hospitalization, Other)
  Sender: UCB
  Company Number: US-UCBSA-2025040435

PATIENT
  Age: 69 Year
  Sex: Male

DRUGS (1)
  1. BIMZELX [Suspect]
     Active Substance: BIMEKIZUMAB-BKZX
     Indication: Psoriatic arthropathy
     Dosage: 160 MILLIGRAM, EV 4 WEEKS
     Route: 058
     Dates: start: 202411

REACTIONS (4)
  - Blood pressure decreased [Unknown]
  - Chest pain [Unknown]
  - Pain in extremity [Unknown]
  - Sinus operation [Unknown]

NARRATIVE: CASE EVENT DATE: 20250501
